FAERS Safety Report 26178205 (Version 1)
Quarter: 2025Q4

REPORT INFORMATION
  Report Type: Report from Study
  Country: ZA (occurrence: ZA)
  Receive Date: 20251219
  Receipt Date: 20251219
  Transmission Date: 20260117
  Serious: Yes (Other)
  Sender: ROCHE
  Company Number: ZA-ROCHE-10000125941

PATIENT
  Sex: Female

DRUGS (2)
  1. OCREVUS [Suspect]
     Active Substance: OCRELIZUMAB
     Indication: Relapsing-remitting multiple sclerosis
     Dosage: THEREAFTER 600MG EVERY 6 MONTHS
     Route: 041
     Dates: start: 20220614
  2. OCREVUS [Suspect]
     Active Substance: OCRELIZUMAB
     Dosage: THEREAFTER 600MG EVERY 6 MONTHS
     Route: 041
     Dates: start: 20220614

REACTIONS (13)
  - White matter lesion [Unknown]
  - Magnetic resonance imaging head abnormal [Unknown]
  - Magnetic resonance imaging spinal abnormal [Unknown]
  - Spondyloarthropathy [Unknown]
  - Intervertebral disc protrusion [Unknown]
  - CSF test abnormal [Unknown]
  - Spinal stenosis [Unknown]
  - Intervertebral disc protrusion [Unknown]
  - Spinal osteoarthritis [Unknown]
  - Spinal stenosis [Unknown]
  - Ligamentum flavum hypertrophy [Unknown]
  - Vertebral foraminal stenosis [Unknown]
  - Demyelination [Unknown]
